FAERS Safety Report 8169035-X (Version None)
Quarter: 2012Q1

REPORT INFORMATION
  Report Type: 
  Country: None (occurrence: None)
  Receive Date: 20120227
  Receipt Date: 20120221
  Transmission Date: 20120608
  Serious: No
  Sender: FDA-Public Use
  Company Number: US-PFIZER INC-2012046172

PATIENT
  Sex: Female
  Weight: 56.689 kg

DRUGS (3)
  1. METOPROLOL [Concomitant]
     Indication: BLOOD PRESSURE ABNORMAL
     Dosage: 25 MG, DAILY
  2. TOVIAZ [Suspect]
     Indication: HYPERTONIC BLADDER
     Dosage: 4 MG, DAILY
     Dates: start: 20110401, end: 20110101
  3. TOVIAZ [Suspect]
     Indication: INFECTION
     Dosage: 4 MG, UNK
     Dates: start: 20120117

REACTIONS (2)
  - LIP SWELLING [None]
  - GASTROOESOPHAGEAL REFLUX DISEASE [None]
